FAERS Safety Report 6515931-6 (Version None)
Quarter: 2009Q4

REPORT INFORMATION
  Report Type: 
  Country: None (occurrence: None)
  Receive Date: 20091223
  Receipt Date: 20090114
  Transmission Date: 20100525
  Serious: No
  Sender: FDA-Public Use
  Company Number: US-ABBOTT-09P-163-0498038-00

PATIENT
  Sex: Male
  Weight: 79.45 kg

DRUGS (1)
  1. LUPRON DEPOT [Suspect]
     Indication: PROSTATOMEGALY
     Route: 030
     Dates: start: 20040101

REACTIONS (2)
  - HOT FLUSH [None]
  - PROSTATIC SPECIFIC ANTIGEN INCREASED [None]
